FAERS Safety Report 6030344-1 (Version None)
Quarter: 2009Q1

REPORT INFORMATION
  Report Type: 
  Country: None (occurrence: None)
  Receive Date: 20090105
  Receipt Date: 20090105
  Transmission Date: 20090719
  Serious: No
  Sender: FDA-Public Use
  Company Number: None

PATIENT
  Age: 47 Year
  Sex: Female
  Weight: 57.1532 kg

DRUGS (1)
  1. EPINEPHRINE [Suspect]
     Indication: ANALGESIA
     Dosage: SQ
     Route: 058

REACTIONS (1)
  - TREMOR [None]
